FAERS Safety Report 9094446 (Version 3)
Quarter: 2013Q2

REPORT INFORMATION
  Report Type: Spontaneous
  Country: US (occurrence: US)
  Receive Date: 20130201
  Receipt Date: 20130409
  Transmission Date: 20140414
  Serious: Yes (Hospitalization)
  Sender: FDA-Public Use
  Company Number: US-ELI_LILLY_AND_COMPANY-US201301005311

PATIENT
  Age: 84 Year
  Sex: Female

DRUGS (7)
  1. FORTEO [Suspect]
     Indication: SENILE OSTEOPOROSIS
     Dosage: 20 UG, QD
     Route: 058
     Dates: start: 20121213, end: 20130119
  2. FORTEO [Suspect]
     Dosage: 20 UG, QD
     Route: 058
     Dates: start: 201301
  3. MAPAP [Concomitant]
  4. HYDROCHLOROTHIAZIDE [Concomitant]
  5. METOPROLOL [Concomitant]
  6. MULTI-VIT [Concomitant]
  7. LEVOTHYROXIN [Concomitant]

REACTIONS (5)
  - Atrial fibrillation [Recovered/Resolved]
  - Fatigue [Unknown]
  - Blood magnesium decreased [Unknown]
  - Weight decreased [Unknown]
  - Blood sodium decreased [Unknown]
